FAERS Safety Report 22842747 (Version 5)
Quarter: 2023Q4

REPORT INFORMATION
  Report Type: Spontaneous
  Country: DE (occurrence: DE)
  Receive Date: 20230821
  Receipt Date: 20231226
  Transmission Date: 20240110
  Serious: Yes (Hospitalization, Other)
  Sender: FDA-Public Use
  Company Number: None

PATIENT
  Age: 45 Year
  Sex: Male

DRUGS (5)
  1. NIVOLUMAB [Suspect]
     Active Substance: NIVOLUMAB
     Indication: Renal cell carcinoma
     Dosage: 480 MG, Q4WEEKS
     Route: 042
  2. NIVOLUMAB [Suspect]
     Active Substance: NIVOLUMAB
     Dosage: 480 MG, Q4WEEKS
     Route: 042
  3. CABOMETYX [Suspect]
     Active Substance: CABOZANTINIB S-MALATE
     Indication: Renal cell carcinoma
     Dosage: 40 MG, QD
  4. DICLOFENAC [Concomitant]
     Active Substance: DICLOFENAC
     Indication: Tumour pain
  5. DICLOFENAC [Concomitant]
     Active Substance: DICLOFENAC
     Indication: Tumour pain

REACTIONS (3)
  - Fistula [Unknown]
  - Malignant neoplasm progression [Unknown]
  - Impaired healing [Unknown]

NARRATIVE: CASE EVENT DATE: 20230601
